FAERS Safety Report 4335448-7 (Version None)
Quarter: 2004Q2

REPORT INFORMATION
  Report Type: 
  Country: None (occurrence: None)
  Receive Date: 20040406
  Receipt Date: 20040227
  Transmission Date: 20050107
  Serious: No
  Sender: FDA-Public Use
  Company Number: HQWYE463001MAR04

PATIENT
  Age: 89 Year
  Sex: Male
  Weight: 65 kg

DRUGS (2)
  1. PROTONIX [Suspect]
     Dosage: 40 MG 1X PER 12 HR, INTRAVENOUS; 8 MG 1X PER 1 HR, INTRAVENOUS DRIP
     Route: 042
     Dates: start: 20040222, end: 20040222
  2. PROTONIX [Suspect]
     Dosage: 40 MG 1X PER 12 HR, INTRAVENOUS; 8 MG 1X PER 1 HR, INTRAVENOUS DRIP
     Route: 042
     Dates: start: 20040223, end: 20040226

REACTIONS (5)
  - INJECTION SITE DISCOLOURATION [None]
  - INJECTION SITE ERYTHEMA [None]
  - INJECTION SITE EXTRAVASATION [None]
  - INJECTION SITE SWELLING [None]
  - INJECTION SITE VESICLES [None]
